FAERS Safety Report 19628495 (Version 3)
Quarter: 2021Q3

REPORT INFORMATION
  Report Type: Spontaneous
  Country: IT (occurrence: IT)
  Receive Date: 20210729
  Receipt Date: 20210917
  Transmission Date: 20211014
  Serious: Yes (Death, Life-Threatening, Other)
  Sender: FDA-Public Use
  Company Number: IT-HIKMA PHARMACEUTICALS USA INC.-IT-H14001-21-03448

PATIENT
  Age: 57 Year
  Sex: Male

DRUGS (15)
  1. OMEPRAZOLE. [Concomitant]
     Active Substance: OMEPRAZOLE
     Indication: NUTRITIONAL SUPPLEMENTATION
     Dosage: UNKNOWN
     Route: 065
  2. CYTARABINE. [Suspect]
     Active Substance: CYTARABINE
     Indication: ACUTE MYELOID LEUKAEMIA
     Route: 042
     Dates: start: 20210705, end: 20210711
  3. AMIKACIN. [Concomitant]
     Active Substance: AMIKACIN
     Indication: NUTRITIONAL SUPPLEMENTATION
  4. FUROSEMIDE. [Concomitant]
     Active Substance: FUROSEMIDE
     Indication: PRODUCT USED FOR UNKNOWN INDICATION
     Dosage: UNKNOWN
     Route: 065
  5. SPIRONOLACTONE. [Concomitant]
     Active Substance: SPIRONOLACTONE
     Indication: PRODUCT USED FOR UNKNOWN INDICATION
     Dosage: UNKNOWN
     Route: 065
  6. DAUNORUBICIN [Suspect]
     Active Substance: DAUNORUBICIN
     Dosage: 100 MG, CYCLIC
     Route: 042
     Dates: start: 20210707, end: 20210707
  7. LINEZOLID. [Concomitant]
     Active Substance: LINEZOLID
     Indication: PRODUCT USED FOR UNKNOWN INDICATION
     Dosage: UNKNOWN
     Route: 065
     Dates: start: 20210716
  8. MEROPENEM. [Concomitant]
     Active Substance: MEROPENEM
     Indication: PRODUCT USED FOR UNKNOWN INDICATION
     Dosage: UNKNOWN
     Route: 065
     Dates: start: 20210709
  9. DAUNORUBICIN [Suspect]
     Active Substance: DAUNORUBICIN
     Dosage: 100 MG, CYCLIC
     Route: 042
     Dates: start: 20210706, end: 20210706
  10. DAUNORUBICIN [Suspect]
     Active Substance: DAUNORUBICIN
     Indication: ACUTE MYELOID LEUKAEMIA
     Dosage: 100 MG, CYCLIC
     Route: 042
     Dates: start: 20210705, end: 20210705
  11. GEMTUZUMAB OZOGAMICIN [Suspect]
     Active Substance: GEMTUZUMAB OZOGAMICIN
     Dosage: 5 MG, CYCLIC
     Route: 042
     Dates: start: 20210711, end: 20210711
  12. CLINIMIX N17G35E [Concomitant]
     Indication: NUTRITIONAL SUPPLEMENTATION
     Dosage: UNKNOWN
     Route: 065
  13. GEMTUZUMAB OZOGAMICIN [Suspect]
     Active Substance: GEMTUZUMAB OZOGAMICIN
     Indication: ACUTE MYELOID LEUKAEMIA
     Dosage: 5 MG, CYCLIC
     Route: 042
     Dates: start: 20210705, end: 20210705
  14. GEMTUZUMAB OZOGAMICIN [Suspect]
     Active Substance: GEMTUZUMAB OZOGAMICIN
     Dosage: 5 MG, CYCLIC
     Route: 042
     Dates: start: 20210708, end: 20210708
  15. POSACONAZOLE [Concomitant]
     Active Substance: POSACONAZOLE
     Indication: PRODUCT USED FOR UNKNOWN INDICATION
     Dosage: UNKNOWN
     Route: 065

REACTIONS (17)
  - Pneumonia [Fatal]
  - Hyperthermia [Unknown]
  - Enterococcal infection [Not Recovered/Not Resolved]
  - Aspergillus test [Unknown]
  - Systemic mycosis [Unknown]
  - Condition aggravated [Unknown]
  - Hypocapnia [Unknown]
  - Interstitial lung disease [Unknown]
  - Respiratory disorder [Unknown]
  - Neutropenia [Unknown]
  - Cytopenia [Unknown]
  - Hypoxia [Unknown]
  - Respiratory failure [Unknown]
  - Lung infiltration [Unknown]
  - Cardiac failure [Unknown]
  - Dyspnoea [Unknown]
  - Sepsis [Not Recovered/Not Resolved]

NARRATIVE: CASE EVENT DATE: 20210715
